APPROVED DRUG PRODUCT: ARESTOCAINE HYDROCHLORIDE
Active Ingredient: MEPIVACAINE HYDROCHLORIDE
Strength: 3%
Dosage Form/Route: INJECTABLE;INJECTION
Application: A084777 | Product #002
Applicant: SOLVAY PHARMACEUTICALS
Approved: Apr 18, 1982 | RLD: No | RS: No | Type: DISCN